FAERS Safety Report 7311410-7 (Version None)
Quarter: 2011Q1

REPORT INFORMATION
  Report Type: 
  Country: None (occurrence: None)
  Receive Date: 20110224
  Receipt Date: 20110216
  Transmission Date: 20110831
  Serious: Yes (Other)
  Sender: FDA-Public Use
  Company Number: BR-PFIZER INC-2011011004

PATIENT
  Age: 68 Year
  Sex: Male
  Weight: 79 kg

DRUGS (7)
  1. CIALIS [Suspect]
     Indication: ERECTILE DYSFUNCTION
  2. UPRIMA [Suspect]
     Indication: ERECTILE DYSFUNCTION
  3. VIAGRA [Suspect]
     Dosage: UNK
     Route: 048
     Dates: start: 20110110
  4. VIAGRA [Suspect]
     Dosage: 100 MG, 1X/DAY
     Route: 048
  5. VIAGRA [Suspect]
     Indication: ERECTILE DYSFUNCTION
     Dosage: 50 MG, 2 TABLETS BEFORE SEXUAL INTERCOURSE
     Route: 048
  6. SOMALGIN [Concomitant]
     Dosage: UNK
  7. LEVITRA [Suspect]
     Indication: ERECTILE DYSFUNCTION

REACTIONS (8)
  - FEELING OF DESPAIR [None]
  - FRUSTRATION [None]
  - OVERDOSE [None]
  - NEPHROLITHIASIS [None]
  - DRUG INEFFECTIVE [None]
  - ANGIOPLASTY [None]
  - VASCULAR GRAFT [None]
  - DEPRESSION [None]
